FAERS Safety Report 7401828-6 (Version None)
Quarter: 2011Q2

REPORT INFORMATION
  Report Type: 
  Country: None (occurrence: None)
  Receive Date: 20110408
  Receipt Date: 20110325
  Transmission Date: 20111010
  Serious: Yes (Death)
  Sender: FDA-Public Use
  Company Number: US-CELGENEUS-163-21880-11030626

PATIENT
  Sex: Male

DRUGS (12)
  1. PHENERGAN HCL [Concomitant]
     Route: 065
  2. COREG [Concomitant]
     Route: 065
  3. VYTORIN [Concomitant]
     Route: 065
  4. AVELOX [Concomitant]
     Route: 065
  5. ZOLOFT [Concomitant]
     Route: 065
  6. CLINDAMYCIN [Concomitant]
     Route: 065
  7. COUMADIN [Concomitant]
     Route: 065
  8. POTASSIUM CHLORIDE [Concomitant]
     Route: 065
  9. REVLIMID [Suspect]
     Indication: MULTIPLE MYELOMA
     Dosage: 25 MILLIGRAM
     Route: 048
     Dates: start: 20080901
  10. REVLIMID [Suspect]
     Dosage: 10 MILLIGRAM
     Route: 048
     Dates: start: 20081001
  11. LANOXIN [Concomitant]
     Route: 065
  12. LASIX [Concomitant]
     Route: 065

REACTIONS (1)
  - RESPIRATORY FAILURE [None]
